FAERS Safety Report 11740049 (Version 1)
Quarter: 2015Q4

REPORT INFORMATION
  Report Type: Spontaneous
  Country: US (occurrence: None)
  Receive Date: 20151113
  Receipt Date: 20151113
  Transmission Date: 20160304
  Serious: Yes (Hospitalization, Other)
  Sender: FDA-Public Use
  Company Number: US-MDT-ADR-2015-02154

PATIENT
  Age: 68 Year
  Sex: Male

DRUGS (2)
  1. BACLOFEN (ORAL) [Suspect]
     Active Substance: BACLOFEN
  2. METFORMIN [Suspect]
     Active Substance: METFORMIN HYDROCHLORIDE
     Indication: DIABETES MELLITUS
     Dosage: 500MG X2/DAY

REACTIONS (16)
  - Nausea [None]
  - Drug withdrawal syndrome [None]
  - Gastrooesophageal reflux disease [None]
  - Dumping syndrome [None]
  - No therapeutic response [None]
  - Postoperative ileus [None]
  - Weight decreased [None]
  - Oral pain [None]
  - Laryngeal oedema [None]
  - Anaemia postoperative [None]
  - Productive cough [None]
  - Sputum discoloured [None]
  - Erosive oesophagitis [None]
  - Oesophageal pain [None]
  - Impaired gastric emptying [None]
  - Hallucination [None]
